FAERS Safety Report 6921318-4 (Version None)
Quarter: 2010Q3

REPORT INFORMATION
  Report Type: 
  Country: None (occurrence: None)
  Receive Date: 20100812
  Receipt Date: 20100805
  Transmission Date: 20110219
  Serious: Yes (Hospitalization)
  Sender: FDA-Public Use
  Company Number: B0669589A

PATIENT
  Age: 83 Year
  Sex: Female

DRUGS (5)
  1. AUGMENTIN '125' [Suspect]
     Indication: RESPIRATORY TRACT INFECTION
     Dosage: .5G THREE TIMES PER DAY
     Route: 048
     Dates: start: 20100511
  2. SINTROM [Suspect]
     Indication: PRODUCT USED FOR UNKNOWN INDICATION
     Route: 048
     Dates: start: 20090530, end: 20100511
  3. URBASON [Concomitant]
     Indication: BRONCHOSPASM
     Route: 065
     Dates: start: 20100511
  4. VENTOLIN [Concomitant]
     Indication: BRONCHOSPASM
     Route: 055
     Dates: start: 20100511
  5. SUMIAL [Concomitant]
     Indication: ARRHYTHMIA
     Dosage: 10MG THREE TIMES PER DAY
     Route: 048
     Dates: start: 20000101

REACTIONS (2)
  - HAEMOGLOBIN DECREASED [None]
  - HYPOCOAGULABLE STATE [None]
